FAERS Safety Report 6832875-0 (Version None)
Quarter: 2010Q3

REPORT INFORMATION
  Report Type: 
  Country: None (occurrence: None)
  Receive Date: 20100712
  Receipt Date: 20070313
  Transmission Date: 20110219
  Serious: No
  Sender: FDA-Public Use
  Company Number: US-PFIZER INC-2007022014

PATIENT
  Sex: Female
  Weight: 95.25 kg

DRUGS (4)
  1. CHANTIX [Suspect]
     Indication: SMOKING CESSATION THERAPY
     Dates: start: 20070101
  2. ANTIHYPERTENSIVES [Concomitant]
     Indication: HYPERTENSION
     Route: 048
  3. NEXIUM [Concomitant]
     Route: 048
  4. LEXAPRO [Concomitant]
     Route: 048

REACTIONS (3)
  - ABNORMAL DREAMS [None]
  - INSOMNIA [None]
  - MENTAL IMPAIRMENT [None]
